FAERS Safety Report 6518368-9 (Version None)
Quarter: 2009Q4

REPORT INFORMATION
  Report Type: 
  Country: None (occurrence: None)
  Receive Date: 20091224
  Receipt Date: 20091123
  Transmission Date: 20100525
  Serious: No
  Sender: FDA-Public Use
  Company Number: US-BAYER-200941311NA

PATIENT
  Age: 37 Year
  Sex: Female

DRUGS (1)
  1. MIRENA [Suspect]
     Indication: MENORRHAGIA
     Dosage: CONTINUOUS DELIVERY
     Route: 015
     Dates: start: 20090901

REACTIONS (3)
  - OEDEMA PERIPHERAL [None]
  - VAGINAL HAEMORRHAGE [None]
  - WEIGHT INCREASED [None]
